FAERS Safety Report 9908541 (Version 1)
Quarter: 2014Q1

REPORT INFORMATION
  Report Type: Spontaneous
  Country: US (occurrence: None)
  Receive Date: 20140212
  Receipt Date: 20140212
  Transmission Date: 20141002
  Serious: Yes (Hospitalization)
  Sender: FDA-Public Use
  Company Number: None

PATIENT
  Age: 74 Year
  Sex: Male
  Weight: 103.6 kg

DRUGS (1)
  1. MYCOPHENOLATE MOFETIL [Suspect]
     Indication: GLOMERULONEPHRITIS MEMBRANOUS
     Route: 048
     Dates: start: 20130601, end: 20130901

REACTIONS (1)
  - Pancreatitis [None]
